FAERS Safety Report 7692418-9 (Version None)
Quarter: 2011Q3

REPORT INFORMATION
  Report Type: 
  Country: None (occurrence: None)
  Receive Date: 20110818
  Receipt Date: 20110805
  Transmission Date: 20111222
  Serious: Yes (Hospitalization)
  Sender: FDA-Public Use
  Company Number: DE-GENENTECH-321722

PATIENT
  Sex: Female

DRUGS (7)
  1. MABTHERA [Suspect]
     Dosage: UNK
     Route: 042
     Dates: start: 20071201
  2. MABTHERA [Suspect]
     Dosage: 1000 MG, UNK
     Route: 042
     Dates: start: 20090924, end: 20090924
  3. PREDNISOLONE [Concomitant]
     Indication: PREMEDICATION
     Dosage: 100 MG, UNK
     Route: 042
  4. MABTHERA [Suspect]
     Indication: RHEUMATOID ARTHRITIS
     Dosage: UNK
     Route: 042
     Dates: start: 20070501
  5. PREDNISOLONE [Concomitant]
     Dosage: 5 MG, QD
     Route: 042
     Dates: start: 20020101
  6. MABTHERA [Suspect]
     Dosage: 1000 MG, UNK
     Route: 042
     Dates: start: 20090910, end: 20090910
  7. METHOTREXATE [Concomitant]
     Indication: RHEUMATOID ARTHRITIS
     Dosage: 15 MG, UNK
     Route: 048
     Dates: start: 20020101

REACTIONS (1)
  - MENTAL DISORDER [None]
